FAERS Safety Report 24349996 (Version 1)
Quarter: 2024Q3

REPORT INFORMATION
  Report Type: Spontaneous
  Country: US (occurrence: None)
  Receive Date: 20240920
  Receipt Date: 20240920
  Transmission Date: 20241017
  Serious: Yes (unspecified)
  Sender: Public
  Company Number: None

PATIENT
  Age: 31 Year
  Sex: Female

DRUGS (1)
  1. HUMIRA [Suspect]
     Active Substance: ADALIMUMAB
     Indication: Colitis ulcerative
     Dosage: FREQUENCY : WEEKLY;?

REACTIONS (4)
  - Therapy interrupted [None]
  - Colitis ulcerative [None]
  - Condition aggravated [None]
  - Haemorrhage [None]

NARRATIVE: CASE EVENT DATE: 20240916
